FAERS Safety Report 23754828 (Version 1)
Quarter: 2024Q2

REPORT INFORMATION
  Report Type: Report from Study
  Country: RU (occurrence: RU)
  Receive Date: 20240418
  Receipt Date: 20240418
  Transmission Date: 20240715
  Serious: Yes (Other)
  Sender: FDA-Public Use
  Company Number: RU-002147023-NVSC2024RU078414

PATIENT
  Age: 0 Year
  Sex: Female
  Weight: 5.2 kg

DRUGS (6)
  1. ZOLGENSMA [Suspect]
     Active Substance: ONASEMNOGENE ABEPARVOVEC-XIOI
     Indication: Spinal muscular atrophy
     Dosage: 30.3 ML, ONCE/SINGLE
     Route: 041
     Dates: start: 20240322, end: 20240322
  2. PREDNISOLONE [Concomitant]
     Active Substance: PREDNISOLONE
     Indication: Product used for unknown indication
     Dosage: 5 MG, (1 TABLET AT 07:00, ? TABLET AT 10:00, ? TABLET AT 11:00 FOR 1 MONTH)
     Route: 065
     Dates: start: 20240322
  3. OMEPRAZOLE [Concomitant]
     Active Substance: OMEPRAZOLE
     Indication: Product used for unknown indication
     Dosage: 5 MG (BEFORE BED DURING THE TIME OF HORMONAL THERAPY)
     Route: 065
     Dates: start: 20240322
  4. LEVOCARNITINE [Concomitant]
     Active Substance: LEVOCARNITINE
     Indication: Product used for unknown indication
     Dosage: 5 DRP, TID (3 TIMES PER DAY (MORNING, LUNCHTIME, EVENING) FOR 2 MONTHS (3 COURSES PER YEAR))
     Route: 065
     Dates: start: 20240322
  5. UBIDECARENONE [Concomitant]
     Active Substance: UBIDECARENONE
     Indication: Product used for unknown indication
     Dosage: 5 DRP, BID (MORNING, EVENING) FOR 2 MONTHS (3 COURSES PER YEAR))
     Route: 065
     Dates: start: 20240322
  6. URSODIOL [Concomitant]
     Active Substance: URSODIOL
     Indication: Product used for unknown indication
     Dosage: 1.25 ML, QD (250 MG/5 ML, ONCE PER DAY BEFORE BED)
     Route: 065
     Dates: start: 20240322

REACTIONS (1)
  - Blood test abnormal [Not Recovered/Not Resolved]

NARRATIVE: CASE EVENT DATE: 20240322
